FAERS Safety Report 9216443 (Version 2)
Quarter: 2013Q1

REPORT INFORMATION
  Report Type: Spontaneous
  Country: JP (occurrence: None)
  Receive Date: 20130204
  Receipt Date: 20130226
  Transmission Date: 20140127
  Serious: No
  Sender: FDA-Public Use
  Company Number: SPI201200458

PATIENT
  Age: 78 Year
  Sex: Female

DRUGS (2)
  1. AMITIZA (LUBIPROSTONE) CAPSULE, 24MCG [Suspect]
     Indication: CONSTIPATION
     Route: 048
     Dates: start: 20121214, end: 20121228
  2. VASOIAN (VERAPAMIL HYDROCHLORIDE) [Concomitant]

REACTIONS (2)
  - Tachycardia [None]
  - Chest discomfort [None]
